FAERS Safety Report 12239683 (Version 1)
Quarter: 2016Q2

REPORT INFORMATION
  Report Type: Report from Study
  Country: US (occurrence: US)
  Receive Date: 20160405
  Receipt Date: 20160405
  Transmission Date: 20160815
  Serious: Yes (Hospitalization, Other)
  Sender: FDA-Public Use
  Company Number: US-BAYER-2016-010779

PATIENT
  Age: 32 Year
  Sex: Female

DRUGS (1)
  1. NEXAVAR [Suspect]
     Active Substance: SORAFENIB
     Indication: BONE CANCER
     Dosage: 200 MG, BID
     Route: 048
     Dates: start: 20160112

REACTIONS (8)
  - Tumour pain [Recovering/Resolving]
  - Malaise [None]
  - Off label use [None]
  - Dry skin [None]
  - Nausea [None]
  - Renal disorder [None]
  - Dry mouth [None]
  - Sleep disorder [Not Recovered/Not Resolved]

NARRATIVE: CASE EVENT DATE: 20160116
